FAERS Safety Report 25778447 (Version 1)
Quarter: 2025Q3

REPORT INFORMATION
  Report Type: Spontaneous
  Country: US (occurrence: US)
  Receive Date: 20250909
  Receipt Date: 20250909
  Transmission Date: 20251021
  Serious: No
  Sender: NOVEN
  Company Number: US-NOVEN PHARMACEUTICALS, INC.-2025-NOV-US001263

PATIENT
  Age: 56 Year
  Sex: Female
  Weight: 60.771 kg

DRUGS (2)
  1. COMBIPATCH [Suspect]
     Active Substance: ESTRADIOL\NORETHINDRONE ACETATE
     Indication: Menopausal symptoms
     Route: 062
  2. DOMPERIDONE [Concomitant]
     Active Substance: DOMPERIDONE
     Indication: Impaired gastric emptying
     Route: 065

REACTIONS (3)
  - Impaired gastric emptying [Recovered/Resolved]
  - Condition aggravated [Recovered/Resolved]
  - Abdominal discomfort [Recovered/Resolved]

NARRATIVE: CASE EVENT DATE: 20250701
